FAERS Safety Report 4886552-6 (Version None)
Quarter: 2005Q4

REPORT INFORMATION
  Report Type: 
  Country: None (occurrence: None)
  Receive Date: 20051220
  Receipt Date: 20050222
  Transmission Date: 20060501
  Serious: Yes (Death)
  Sender: FDA-Public Use
  Company Number: HQWYE496023FEB05

PATIENT
  Age: 18 Year
  Sex: Male
  Weight: 61.74 kg

DRUGS (5)
  1. EFFEXOR XR [Suspect]
     Indication: MAJOR DEPRESSION
     Dosage: 75 MG 1X PER 1 DAY, ORAL ; 150 MG 1X PER 1 DAY, ORAL
     Route: 048
     Dates: start: 20041220, end: 20050109
  2. EFFEXOR XR [Suspect]
     Indication: MAJOR DEPRESSION
     Dosage: 75 MG 1X PER 1 DAY, ORAL ; 150 MG 1X PER 1 DAY, ORAL
     Route: 048
     Dates: start: 20050110
  3. ALEVE [Suspect]
     Dosage: OVERDOSE AMOUNT UNKNOWN
     Dates: start: 20050110, end: 20050110
  4. ATIVAN [Suspect]
     Indication: ANXIETY
     Dosage: OVERDOSE AMOUNT UNKNOWN
     Dates: start: 20050110, end: 20050110
  5. PSEUDOEPHEDRINE HCL [Suspect]
     Dosage: OVERDOSE AMOUNT UNKNOWN
     Dates: start: 20050110, end: 20050110

REACTIONS (3)
  - COMPLETED SUICIDE [None]
  - INTENTIONAL OVERDOSE [None]
  - SUICIDE ATTEMPT [None]
